FAERS Safety Report 6441058-8 (Version None)
Quarter: 2009Q4

REPORT INFORMATION
  Report Type: 
  Country: None (occurrence: None)
  Receive Date: 20091116
  Receipt Date: 20091106
  Transmission Date: 20100525
  Serious: Yes (Other)
  Sender: FDA-Public Use
  Company Number: FR-ROCHE-667308

PATIENT
  Sex: Female

DRUGS (1)
  1. XELODA [Suspect]
     Dosage: DOSE: 1500 MG IN THE MORNING AND IN THE EVENING
     Route: 065
     Dates: start: 20090205, end: 20090212

REACTIONS (5)
  - DIARRHOEA [None]
  - FEBRILE NEUTROPENIA [None]
  - NAUSEA [None]
  - RADIATION MUCOSITIS [None]
  - VOMITING [None]
